FAERS Safety Report 7775296-9 (Version None)
Quarter: 2011Q3

REPORT INFORMATION
  Report Type: 
  Country: None (occurrence: None)
  Receive Date: 20110923
  Receipt Date: 20110919
  Transmission Date: 20111222
  Serious: Yes (Hospitalization, Other)
  Sender: FDA-Public Use
  Company Number: US-ABBOTT-11P-163-0856241-00

PATIENT
  Sex: Male
  Weight: 69.916 kg

DRUGS (3)
  1. HUMIRA [Suspect]
     Indication: PSORIASIS
  2. HUMIRA [Suspect]
     Indication: PSORIATIC ARTHROPATHY
     Route: 058
     Dates: start: 20090501, end: 20110801
  3. METHOTREXATE [Concomitant]
     Indication: PRODUCT USED FOR UNKNOWN INDICATION
     Dates: end: 20110801

REACTIONS (15)
  - ENCEPHALOPATHY [None]
  - COUGH [None]
  - UNRESPONSIVE TO STIMULI [None]
  - RENAL FAILURE [None]
  - BACK PAIN [None]
  - DECREASED APPETITE [None]
  - SOMNOLENCE [None]
  - PULMONARY NECROSIS [None]
  - PNEUMONIA STREPTOCOCCAL [None]
  - HYPOTENSION [None]
  - CHEST PAIN [None]
  - COMA [None]
  - PLATELET COUNT DECREASED [None]
  - WHITE BLOOD CELL COUNT DECREASED [None]
  - ASTHENIA [None]
